FAERS Safety Report 15320586 (Version 1)
Quarter: 2018Q3

REPORT INFORMATION
  Report Type: Spontaneous
  Country: US (occurrence: US)
  Receive Date: 20180827
  Receipt Date: 20180827
  Transmission Date: 20181010
  Serious: No
  Sender: FDA-Public Use
  Company Number: US-GLAXOSMITHKLINE-US2018GSK145150

PATIENT
  Age: 68 Year
  Sex: Female
  Weight: 62.59 kg

DRUGS (4)
  1. VISTARIL CAPSULE [Concomitant]
     Dosage: 50 MG, AT NIGHT
  2. TYLENOL TABLET [Concomitant]
     Dosage: 500 MG, QD
     Route: 048
  3. WELLBUTRIN [Suspect]
     Active Substance: BUPROPION HYDROCHLORIDE
     Indication: PRODUCT USED FOR UNKNOWN INDICATION
     Dosage: UNK
  4. HYDROXYZINE COATED TABLET [Concomitant]
     Dosage: 10 MG, UNK
     Dates: start: 1998, end: 2006

REACTIONS (4)
  - Feeling abnormal [Unknown]
  - Abnormal dreams [Unknown]
  - Psychotic disorder [Unknown]
  - Abnormal sleep-related event [Unknown]

NARRATIVE: CASE EVENT DATE: 1998
